FAERS Safety Report 16296158 (Version 1)
Quarter: 2019Q2

REPORT INFORMATION
  Report Type: Spontaneous
  Country: US (occurrence: US)
  Receive Date: 20190510
  Receipt Date: 20190510
  Transmission Date: 20190711
  Serious: No
  Sender: FDA-Public Use
  Company Number: US-AMAG PHARMACEUTICALS, INC.-AMAG201901232

PATIENT
  Sex: Female

DRUGS (1)
  1. INTRAROSA [Suspect]
     Active Substance: PRASTERONE
     Indication: PRODUCT USED FOR UNKNOWN INDICATION
     Dosage: 6.5MG
     Route: 067
     Dates: start: 201903

REACTIONS (4)
  - Pelvic pain [Unknown]
  - Pain [Unknown]
  - Vulvovaginal pain [Unknown]
  - Gait disturbance [Unknown]
